FAERS Safety Report 5555683-X (Version None)
Quarter: 2007Q4

REPORT INFORMATION
  Report Type: 
  Country: None (occurrence: None)
  Receive Date: 20071213
  Receipt Date: 20070827
  Transmission Date: 20080405
  Serious: No
  Sender: FDA-Public Use
  Company Number: US-AMGEN-KDL230513

PATIENT
  Sex: Male
  Weight: 99 kg

DRUGS (4)
  1. ENBREL [Suspect]
     Indication: PSORIATIC ARTHROPATHY
     Route: 058
     Dates: start: 20070328, end: 20070601
  2. METHOTREXATE [Concomitant]
  3. SULFASALAZINE [Concomitant]
  4. OXYCODONE HCL [Concomitant]
     Dates: start: 20060101

REACTIONS (7)
  - DYSPNOEA [None]
  - HYPERSENSITIVITY [None]
  - HYPOAESTHESIA [None]
  - NASAL CONGESTION [None]
  - NAUSEA [None]
  - PARAESTHESIA [None]
  - VOMITING [None]
